FAERS Safety Report 4929891-2 (Version None)
Quarter: 2006Q1

REPORT INFORMATION
  Report Type: 
  Country: None (occurrence: None)
  Receive Date: 20060227
  Receipt Date: 20050830
  Transmission Date: 20060701
  Serious: Yes (Other)
  Sender: FDA-Public Use
  Company Number: 2005035288

PATIENT
  Age: 76 Year
  Sex: Female
  Weight: 68.0396 kg

DRUGS (5)
  1. DETROL LA [Suspect]
     Indication: NOCTURIA
     Dosage: 4 MG (4 MG, 1 IN 1 D),ORAL
     Route: 048
     Dates: start: 20050211
  2. FUROSEMIDE [Suspect]
     Indication: ILL-DEFINED DISORDER
  3. DIGOXIN [Concomitant]
  4. CARDIZEM (DILTAZEM HYDROCHLORIDE) [Concomitant]
  5. OCUVOTE (ASCORBIC ACID, RETINOL, TOCOPHEROL) [Concomitant]

REACTIONS (6)
  - CEREBROVASCULAR ACCIDENT [None]
  - CONDITION AGGRAVATED [None]
  - FEELING ABNORMAL [None]
  - MEMORY IMPAIRMENT [None]
  - SOMNOLENCE [None]
  - THERAPY NON-RESPONDER [None]
